FAERS Safety Report 4697441-4 (Version None)
Quarter: 2005Q2

REPORT INFORMATION
  Report Type: 
  Country: None (occurrence: None)
  Receive Date: 20050621
  Receipt Date: 20050603
  Transmission Date: 20051028
  Serious: Yes (Hospitalization)
  Sender: FDA-Public Use
  Company Number: USA041079991

PATIENT
  Age: 89 Year
  Sex: Female
  Weight: 48 kg

DRUGS (3)
  1. FORTEO [Suspect]
     Indication: OSTEOPOROSIS
     Dosage: 20 UG/ 1 DAY
     Dates: start: 20040601
  2. COUMADIN [Concomitant]
  3. PREDNISONE [Suspect]

REACTIONS (14)
  - AGITATION [None]
  - BLOOD CALCIUM INCREASED [None]
  - DIARRHOEA [None]
  - DYSPHAGIA [None]
  - FALL [None]
  - INSOMNIA [None]
  - MUSCULOSKELETAL STIFFNESS [None]
  - NERVOUSNESS [None]
  - PAIN [None]
  - PHARMACEUTICAL PRODUCT COMPLAINT [None]
  - TEMPORAL ARTERITIS [None]
  - URINARY TRACT INFECTION [None]
  - VESTIBULAR ATAXIA [None]
  - WEIGHT INCREASED [None]
